FAERS Safety Report 10622907 (Version 1)
Quarter: 2014Q4

REPORT INFORMATION
  Report Type: Spontaneous
  Country: US (occurrence: US)
  Receive Date: 20141203
  Receipt Date: 20141203
  Transmission Date: 20150529
  Serious: Yes (Death)
  Sender: FDA-Public Use
  Company Number: US-BAYER-2014-178529

PATIENT
  Sex: Female
  Weight: 45 kg

DRUGS (2)
  1. BAYER GENUINE ASPIRIN [Suspect]
     Active Substance: ASPIRIN
     Dosage: UNK, QD
     Route: 048
  2. MILK OF MAGNESIA ORIGINAL [Suspect]
     Active Substance: MAGNESIUM HYDROXIDE
     Dosage: UNK, PRN
     Route: 048

REACTIONS (1)
  - Death [Fatal]
